FAERS Safety Report 10390557 (Version 2)
Quarter: 2014Q3

REPORT INFORMATION
  Report Type: Spontaneous
  Country: US (occurrence: US)
  Receive Date: 20140818
  Receipt Date: 20140818
  Transmission Date: 20150326
  Serious: Yes (Other)
  Sender: FDA-Public Use
  Company Number: US-US-EMD SERONO, INC.-7008076

PATIENT
  Age: 45 Year
  Sex: Female
  Weight: 57 kg

DRUGS (1)
  1. REBIF [Suspect]
     Active Substance: INTERFERON BETA-1A
     Indication: MULTIPLE SCLEROSIS
     Route: 058
     Dates: start: 20030315

REACTIONS (5)
  - Anaemia [Unknown]
  - Constipation [Unknown]
  - Headache [Recovered/Resolved]
  - Rectal prolapse [Unknown]
  - Contusion [Unknown]

NARRATIVE: CASE EVENT DATE: 200912
